FAERS Safety Report 21066297 (Version 1)
Quarter: 2022Q3

REPORT INFORMATION
  Report Type: Spontaneous
  Country: US (occurrence: US)
  Receive Date: 20220711
  Receipt Date: 20220711
  Transmission Date: 20221026
  Serious: No
  Sender: FDA-Public Use
  Company Number: US-INTRA-CELLULAR THERAPIES, INC.-2022ICT00309

PATIENT
  Sex: Female
  Weight: 48.526 kg

DRUGS (3)
  1. CAPLYTA [Suspect]
     Active Substance: LUMATEPERONE
     Indication: Bipolar II disorder
     Dosage: 42 MG, 1X/DAY
     Route: 048
     Dates: start: 202202, end: 202203
  2. CAPLYTA [Suspect]
     Active Substance: LUMATEPERONE
     Indication: Bipolar disorder
  3. ZOLOFT [Concomitant]
     Active Substance: SERTRALINE HYDROCHLORIDE
     Dosage: 200 MG

REACTIONS (5)
  - Autoscopy [Recovered/Resolved]
  - Amnesia [Recovered/Resolved]
  - Anhedonia [Recovered/Resolved]
  - Apathy [Recovered/Resolved]
  - Confusional state [Recovered/Resolved]

NARRATIVE: CASE EVENT DATE: 20220101
